FAERS Safety Report 4622468-8 (Version None)
Quarter: 2005Q1

REPORT INFORMATION
  Report Type: 
  Country: None (occurrence: None)
  Receive Date: 20050330
  Receipt Date: 20050309
  Transmission Date: 20050727
  Serious: Yes (Other)
  Sender: FDA-Public Use
  Company Number: 200512294GDDC

PATIENT
  Sex: Female

DRUGS (2)
  1. ENOXAPARIN SODIUM [Suspect]
     Indication: ABORTION
     Dosage: DOSE: UNK
     Route: 058
  2. ENOXAPARIN SODIUM [Suspect]
     Indication: HYPERCOAGULATION
     Dosage: DOSE: UNK
     Route: 058

REACTIONS (2)
  - ALOPECIA [None]
  - COMPLICATIONS OF MATERNAL EXPOSURE TO THERAPEUTIC DRUGS [None]
